FAERS Safety Report 9199232 (Version 3)
Quarter: 2014Q1

REPORT INFORMATION
  Report Type: Spontaneous
  Country: US (occurrence: US)
  Receive Date: 20130329
  Receipt Date: 20140218
  Transmission Date: 20141002
  Serious: No
  Sender: FDA-Public Use
  Company Number: US-009507513-1303USA012752

PATIENT
  Sex: Male

DRUGS (6)
  1. PROPECIA [Suspect]
     Indication: ANDROGENETIC ALOPECIA
     Dosage: 0.25 MG, QD
     Route: 048
     Dates: start: 20091028
  2. FINASTERIDE [Suspect]
     Indication: ANDROGENETIC ALOPECIA
     Dosage: 1.25 MG, QD
     Dates: start: 20060927
  3. ROGAINE [Concomitant]
     Indication: ANDROGENETIC ALOPECIA
     Dosage: QD - BID
     Dates: start: 20060927
  4. NIZORAL [Concomitant]
     Indication: ANDROGENETIC ALOPECIA
     Dosage: 2-3 X WEEKLY
     Dates: start: 20060927
  5. KEFLEX [Concomitant]
     Indication: FOLLICULITIS
     Dosage: 500 MG, TID
     Dates: start: 20060927
  6. MUPIROCIN [Concomitant]
     Indication: FOLLICULITIS

REACTIONS (9)
  - Cognitive disorder [Not Recovered/Not Resolved]
  - Wrong technique in drug usage process [Unknown]
  - Wrong technique in drug usage process [Unknown]
  - Hernia repair [Unknown]
  - Sexual dysfunction [Not Recovered/Not Resolved]
  - Erectile dysfunction [Unknown]
  - Loss of libido [Unknown]
  - Depression [Unknown]
  - Drug ineffective [Unknown]
